FAERS Safety Report 15831672 (Version 1)
Quarter: 2018Q4

REPORT INFORMATION
  Report Type: Spontaneous
  Country: US (occurrence: US)
  Receive Date: 20181219
  Receipt Date: 20181219
  Transmission Date: 20190205
  Serious: No
  Sender: FDA-Public Use
  Company Number: None

PATIENT
  Age: 70 Year
  Sex: Female

DRUGS (1)
  1. OTEZLA [Suspect]
     Active Substance: APREMILAST
     Indication: PSORIASIS
     Dosage: AS DIRECTED
     Route: 048

REACTIONS (7)
  - Diarrhoea [None]
  - Headache [None]
  - Pain in extremity [None]
  - Pain in jaw [None]
  - Jaw disorder [None]
  - Influenza like illness [None]
  - Dyschezia [None]
